FAERS Safety Report 7754099-5 (Version None)
Quarter: 2011Q3

REPORT INFORMATION
  Report Type: 
  Country: None (occurrence: None)
  Receive Date: 20110915
  Receipt Date: 20110906
  Transmission Date: 20111222
  Serious: Yes (Hospitalization, Other)
  Sender: FDA-Public Use
  Company Number: US-ASTRAZENECA-2010SE31401

PATIENT
  Age: 607 Month
  Sex: Female

DRUGS (24)
  1. MIACALCIN [Concomitant]
     Dosage: SPRAY DAILY
  2. VIT D [Concomitant]
     Dosage: 50000 UNIT DAILY
  3. ZEGERID [Concomitant]
  4. KLO-CON [Concomitant]
  5. CRESTOR [Suspect]
     Indication: HYPERCHOLESTEROLAEMIA
     Route: 048
     Dates: start: 20060101
  6. FUROSEMIDE [Concomitant]
  7. GABAPENTIN [Concomitant]
  8. WELCHOL [Concomitant]
  9. FLUOXETINE [Concomitant]
  10. PROAIR HFA [Concomitant]
     Dosage: 4 SPRAYS DAILY
  11. SYMBICORT [Suspect]
     Indication: ASTHMA
     Dosage: 160/4.5, 2 SPRAY AT NIGHT
     Route: 055
     Dates: start: 20090101
  12. LISINOPRIL [Suspect]
     Route: 048
  13. ETODOLAC [Concomitant]
  14. IBUPROFEN [Concomitant]
  15. NEXIUM [Suspect]
     Indication: GASTROOESOPHAGEAL REFLUX DISEASE
     Route: 048
     Dates: start: 20090101
  16. ALPRAZOLAM [Concomitant]
     Dosage: 0.5 THREE TIMES A DAY
  17. CYCLOBENZAPR [Concomitant]
  18. FASTIN [Concomitant]
  19. OGESTREL 0.5/50-21 [Concomitant]
     Dosage: DAILY
  20. MECLIZINE [Concomitant]
  21. LISINOPRIL [Suspect]
     Dosage: 20/12.5 EVERY MORNING
     Route: 048
  22. SKELAXIN [Concomitant]
  23. PATANASE [Concomitant]
     Dosage: 0.6 / SPRAY DAILY
  24. TEMAZEPAM [Concomitant]

REACTIONS (4)
  - ASTHMA [None]
  - MYOCARDIAL REPERFUSION INJURY [None]
  - MYOCARDIAL INFARCTION [None]
  - SPEECH DISORDER [None]
